FAERS Safety Report 4264587-4 (Version None)
Quarter: 2004Q1

REPORT INFORMATION
  Report Type: 
  Country: None (occurrence: None)
  Receive Date: 20040105
  Receipt Date: 20031219
  Transmission Date: 20041129
  Serious: Yes (Hospitalization)
  Sender: FDA-Public Use
  Company Number: 200319936US

PATIENT
  Age: 66 Year
  Sex: Male
  Weight: 112.2 kg

DRUGS (7)
  1. LANTUS [Suspect]
     Dosage: 34 U QD SC
     Route: 058
     Dates: start: 20031021
  2. LASIX [Suspect]
     Indication: CORONARY ARTERY DISEASE
     Dosage: 20 MG QD PO
     Route: 048
     Dates: start: 20011101
  3. COUMADIN [Concomitant]
  4. NAPROSYN [Concomitant]
  5. TRICOR [Concomitant]
  6. LIPITOR [Concomitant]
  7. ACCUPRIL [Concomitant]

REACTIONS (4)
  - CARDIAC FAILURE CONGESTIVE [None]
  - CARDIOMYOPATHY [None]
  - CORONARY ARTERY DISEASE [None]
  - EJECTION FRACTION DECREASED [None]
